FAERS Safety Report 12724216 (Version 1)
Quarter: 2016Q3

REPORT INFORMATION
  Report Type: Other
  Country: FR (occurrence: FR)
  Receive Date: 20160908
  Receipt Date: 20160908
  Transmission Date: 20161109
  Serious: Yes (Hospitalization, Other)
  Sender: FDA-Public Use
  Company Number: FR-SYMPLMED PHARMACEUTICALS-2016SYMPLMED000312

PATIENT

DRUGS (2)
  1. PERINDOPRIL ARGININE [Suspect]
     Active Substance: PERINDOPRIL ARGININE
     Indication: HYPERTENSION
     Dosage: 10 MG, UNK
     Route: 065
     Dates: start: 201602, end: 20160320
  2. BIPRETERAX                         /06377001/ [Suspect]
     Active Substance: INDAPAMIDE\PERINDOPRIL
     Indication: HYPERTENSION
     Dosage: 1 (2.5MG/10MG) TABLET, QD
     Route: 048
     Dates: start: 20160321, end: 20160329

REACTIONS (7)
  - Headache [Unknown]
  - Dizziness [Unknown]
  - Vomiting [Unknown]
  - Product use issue [Unknown]
  - Hypokalaemia [Unknown]
  - Hypertension [Unknown]
  - Balance disorder [Unknown]

NARRATIVE: CASE EVENT DATE: 201603
